FAERS Safety Report 15626737 (Version 1)
Quarter: 2018Q4

REPORT INFORMATION
  Report Type: Spontaneous
  Country: US (occurrence: US)
  Receive Date: 20181112
  Receipt Date: 20181112
  Transmission Date: 20190205
  Serious: No
  Sender: FDA-Public Use
  Company Number: None

PATIENT
  Sex: Female

DRUGS (17)
  1. POTASSIUM CHLORIDE. [Concomitant]
     Active Substance: POTASSIUM CHLORIDE
  2. LISINOPRIL. [Concomitant]
     Active Substance: LISINOPRIL
  3. NITROSTAT [Concomitant]
     Active Substance: NITROGLYCERIN
  4. ALBUTEROL. [Concomitant]
     Active Substance: ALBUTEROL
  5. DILTIAZEM. [Concomitant]
     Active Substance: DILTIAZEM
  6. PLAVIX [Concomitant]
     Active Substance: CLOPIDOGREL BISULFATE
  7. SIMVASTATIN. [Concomitant]
     Active Substance: SIMVASTATIN
  8. VICODIN [Concomitant]
     Active Substance: ACETAMINOPHEN\HYDROCODONE BITARTRATE
  9. XELJANZ [Suspect]
     Active Substance: TOFACITINIB CITRATE
     Indication: RHEUMATOID ARTHRITIS
     Route: 048
     Dates: start: 20160912, end: 20181008
  10. ANORO ELLIPTA [Concomitant]
     Active Substance: UMECLIDINIUM BROMIDE\VILANTEROL TRIFENATATE
  11. THEOCHRON [Concomitant]
     Active Substance: THEOPHYLLINE ANHYDROUS
  12. INDOMETHACIN. [Concomitant]
     Active Substance: INDOMETHACIN
  13. PREDNISONE. [Concomitant]
     Active Substance: PREDNISONE
  14. LEFLUNOMIDE. [Concomitant]
     Active Substance: LEFLUNOMIDE
  15. MYRBETRIQ [Concomitant]
     Active Substance: MIRABEGRON
  16. EZETIMIBE. [Concomitant]
     Active Substance: EZETIMIBE
  17. TORSEMIDE. [Concomitant]
     Active Substance: TORSEMIDE

REACTIONS (5)
  - Infection [None]
  - Bronchitis [None]
  - Ear infection [None]
  - Cellulitis [None]
  - Sinusitis [None]
